FAERS Safety Report 9367694 (Version 2)
Quarter: 2019Q3

REPORT INFORMATION
  Report Type: Report from Study
  Country: US (occurrence: US)
  Receive Date: 20130625
  Receipt Date: 20190916
  Transmission Date: 20191005
  Serious: Yes (Death, Hospitalization, Other)
  Sender: FDA-Public Use
  Company Number: US-CELGENEUS-163-21880-13062883

PATIENT
  Age: 60 Year
  Sex: Male
  Weight: 73.09 kg

DRUGS (38)
  1. FENTANYL. [Concomitant]
     Active Substance: FENTANYL
     Indication: SEDATION
     Route: 041
     Dates: start: 20130611, end: 20130611
  2. DEXAMETHASONE. [Suspect]
     Active Substance: DEXAMETHASONE
     Dosage: 20 MILLIGRAM
     Route: 065
     Dates: start: 20130530, end: 20130606
  3. ACYCLOVIR. [Concomitant]
     Active Substance: ACYCLOVIR
     Indication: ANTIVIRAL PROPHYLAXIS
     Dosage: 1600 MILLIGRAM
     Route: 048
     Dates: start: 20100603, end: 20130609
  4. AMBIEN [Concomitant]
     Active Substance: ZOLPIDEM TARTRATE
     Indication: INSOMNIA
     Route: 048
     Dates: start: 20130502
  5. GLUTAMINE [Concomitant]
     Active Substance: GLUTAMINE
     Indication: NEUROPATHY PERIPHERAL
     Dosage: 4 GRAM
     Route: 048
     Dates: start: 20100922
  6. PSYLLIUM [Concomitant]
     Active Substance: PLANTAGO SEED
     Indication: SUPPLEMENTATION THERAPY
     Dosage: 1 PACKET
     Route: 048
     Dates: start: 20130614
  7. SENNA S [Concomitant]
     Active Substance: DOCUSATE SODIUM\SENNA LEAF
     Indication: CONSTIPATION
     Dosage: 2 TABLET
     Route: 048
     Dates: start: 20100919, end: 20130610
  8. VITAMIN D [Concomitant]
     Active Substance: VITAMIN D NOS
     Dosage: 10000 IU (INTERNATIONAL UNIT)
     Route: 065
  9. REVLIMID [Suspect]
     Active Substance: LENALIDOMIDE
     Dosage: 5 MILLIGRAM
     Route: 048
     Dates: start: 20130605, end: 20130605
  10. DEXAMETHASONE. [Suspect]
     Active Substance: DEXAMETHASONE
     Indication: PLASMA CELL MYELOMA RECURRENT
     Dosage: 40 MILLIGRAM
     Route: 065
     Dates: start: 20110728, end: 20130523
  11. CHOLECALCIFEROL [Concomitant]
     Active Substance: CHOLECALCIFEROL
     Indication: SUPPLEMENTATION THERAPY
     Dosage: 1000 UNITS
     Route: 048
     Dates: start: 20130613
  12. FERROUS SULFATE. [Concomitant]
     Active Substance: FERROUS SULFATE
     Indication: IRON DEFICIENCY
     Dosage: 975 MILLIGRAM
     Route: 048
     Dates: start: 20120405
  13. GLUTAMINE [Concomitant]
     Active Substance: GLUTAMINE
     Dosage: 4000 MILLIGRAM
     Route: 048
  14. OMEPRAZOLE. [Concomitant]
     Active Substance: OMEPRAZOLE
     Dosage: 40 MILLIGRAM
     Route: 065
  15. VERSED [Concomitant]
     Active Substance: MIDAZOLAM HYDROCHLORIDE
     Indication: SEDATION
     Route: 041
     Dates: start: 20130611, end: 20130611
  16. VITAMIN B COMPLEX [Concomitant]
     Active Substance: CYANOCOBALAMIN\DEXPANTHENOL\NIACINAMIDE\PYRIDOXINE HYDROCHLORIDE\RIBOFLAVIN 5^-PHOSPHATE SODIUM\THIAMINE HYDROCHLORIDE\VITAMIN B COMPLEX
     Indication: SUPPLEMENTATION THERAPY
     Dosage: 2 CAPSULE
     Route: 048
     Dates: start: 20101209
  17. IMATINIB. [Concomitant]
     Active Substance: IMATINIB MESYLATE
     Dosage: 400 MILLIGRAM
     Route: 048
  18. REVLIMID [Suspect]
     Active Substance: LENALIDOMIDE
     Indication: PLASMA CELL MYELOMA RECURRENT
     Dosage: 25 MILLIGRAM
     Route: 048
     Dates: start: 20110728, end: 20130604
  19. OMEPRAZOLE. [Concomitant]
     Active Substance: OMEPRAZOLE
     Indication: DRUG THERAPY
     Dosage: 20 MILLIGRAM
     Route: 048
     Dates: start: 20110727, end: 20130609
  20. VITAMIN D [Concomitant]
     Active Substance: VITAMIN D NOS
     Indication: SUPPLEMENTATION THERAPY
     Dosage: 2000 IU (INTERNATIONAL UNIT)
     Route: 048
     Dates: start: 20101014
  21. THALOMID [Suspect]
     Active Substance: THALIDOMIDE
     Indication: PLASMA CELL MYELOMA
     Dosage: 200 MILLIGRAM
     Route: 048
     Dates: start: 20121116
  22. FENTANYL. [Concomitant]
     Active Substance: FENTANYL
     Route: 041
     Dates: start: 20130613, end: 20130613
  23. POTASSIUM CHLORIDE. [Concomitant]
     Active Substance: POTASSIUM CHLORIDE
     Indication: HYPOKALAEMIA
     Route: 048
     Dates: start: 20130613, end: 20130613
  24. ZOMETA [Concomitant]
     Active Substance: ZOLEDRONIC ACID
     Indication: DRUG THERAPY
     Dosage: 4 MILLIGRAM
     Route: 041
     Dates: start: 20110920, end: 20130530
  25. VITAMIN K [Concomitant]
     Active Substance: PHYTONADIONE
     Dosage: 100 MICROGRAM
     Route: 065
  26. REVLIMID [Suspect]
     Active Substance: LENALIDOMIDE
     Dosage: 25 MILLIGRAM
     Route: 048
     Dates: start: 20130606, end: 20130609
  27. ASPIRIN. [Concomitant]
     Active Substance: ASPIRIN
     Indication: ANTIPLATELET THERAPY
     Dosage: 81 MILLIGRAM
     Route: 065
  28. CALCIUM CARBONATE. [Concomitant]
     Active Substance: CALCIUM CARBONATE
     Indication: SUPPLEMENTATION THERAPY
     Dosage: 1000 MILLIGRAM
     Route: 048
     Dates: start: 20130614
  29. OMEPRAZOLE. [Concomitant]
     Active Substance: OMEPRAZOLE
     Dosage: 80 MILLIGRAM
     Route: 048
     Dates: start: 20130613
  30. VICODIN [Concomitant]
     Active Substance: ACETAMINOPHEN\HYDROCODONE BITARTRATE
     Indication: BACK PAIN
     Dosage: 1-2 TABS
     Route: 048
     Dates: start: 20100909, end: 20130611
  31. THALOMID [Suspect]
     Active Substance: THALIDOMIDE
     Dosage: 50MG TO 200MG
     Route: 048
     Dates: start: 201405
  32. ACYCLOVIR. [Concomitant]
     Active Substance: ACYCLOVIR
     Dosage: 1000 MILLIGRAM
     Route: 041
     Dates: start: 20130611, end: 20130614
  33. ACYCLOVIR. [Concomitant]
     Active Substance: ACYCLOVIR
     Dosage: 1600 MILLIGRAM
     Route: 041
     Dates: start: 20130614
  34. VERSED [Concomitant]
     Active Substance: MIDAZOLAM HYDROCHLORIDE
     Route: 041
     Dates: start: 20130613, end: 20130613
  35. VITAMIN C [Concomitant]
     Active Substance: ASCORBIC ACID
     Dosage: 500 MILLIGRAM
     Route: 065
  36. ASPIRIN. [Concomitant]
     Active Substance: ASPIRIN
     Indication: ANTICOAGULANT THERAPY
     Dosage: 325 MILLIGRAM
     Route: 048
     Dates: start: 20110627, end: 20130609
  37. CALCIUM + VITAMIN D [Concomitant]
     Active Substance: CALCIUM\VITAMIN D
     Indication: SUPPLEMENTATION THERAPY
     Dosage: 1200 MILLIGRAM
     Route: 048
     Dates: start: 20100919, end: 20130610
  38. VICODIN [Concomitant]
     Active Substance: ACETAMINOPHEN\HYDROCODONE BITARTRATE
     Dosage: 1-2 TABS
     Route: 048
     Dates: start: 20130615

REACTIONS (2)
  - Gastrointestinal stromal tumour [Fatal]
  - Plasma cell myeloma [Fatal]

NARRATIVE: CASE EVENT DATE: 20130613
